FAERS Safety Report 8335096 (Version 2)
Quarter: 2013Q3

REPORT INFORMATION
  Report Type: Spontaneous
  Country: FR (occurrence: FR)
  Receive Date: 20120112
  Receipt Date: 20130704
  Transmission Date: 20140515
  Serious: Yes (Hospitalization)
  Sender: FDA-Public Use
  Company Number: FR-ASTRAZENECA-2012SE00485

PATIENT
  Age: 60 Year
  Sex: Female

DRUGS (10)
  1. XEROQUEL [Suspect]
     Indication: DEPRESSION
     Route: 048
     Dates: start: 20111201, end: 20111202
  2. CYMBALTA [Suspect]
     Indication: DEPRESSION
     Route: 048
     Dates: start: 20111107, end: 20111208
  3. NOROXINE [Suspect]
     Indication: CYSTITIS BACTERIAL
     Route: 048
     Dates: start: 20111122, end: 20111130
  4. CORTANCYL [Concomitant]
     Indication: CUTANEOUS LUPUS ERYTHEMATOSUS
     Route: 048
  5. COVERSYL [Concomitant]
     Route: 048
  6. ISOPTINE [Concomitant]
  7. KARDEGIC [Concomitant]
  8. LYSANXIA [Concomitant]
  9. PARIET [Concomitant]
  10. SIMVASTATINE [Concomitant]

REACTIONS (2)
  - Drug eruption [Recovered/Resolved]
  - Pruritus [Recovered/Resolved]
